FAERS Safety Report 4575737-4 (Version None)
Quarter: 2005Q1

REPORT INFORMATION
  Report Type: 
  Country: None (occurrence: None)
  Receive Date: 20050209
  Receipt Date: 20050126
  Transmission Date: 20050727
  Serious: Yes (Hospitalization, Disabling)
  Sender: FDA-Public Use
  Company Number: US-GLAXOSMITHKLINE-A0542372A

PATIENT
  Age: 68 Year
  Sex: Female
  Weight: 72.7 kg

DRUGS (10)
  1. NICODERM CQ [Suspect]
     Indication: SMOKING CESSATION THERAPY
     Route: 062
     Dates: start: 20020101
  2. NICODERM CQ [Suspect]
     Indication: SMOKING CESSATION THERAPY
     Route: 062
     Dates: start: 20020101
  3. OS-CAL 500+D TABLETS [Suspect]
     Indication: SMOKING CESSATION THERAPY
     Route: 048
     Dates: start: 19810101
  4. VIOXX [Concomitant]
     Indication: ARTHRITIS
     Route: 048
  5. CHOLESTEROL REDUCING AGENT NAME NOT KNOWN [Concomitant]
     Indication: BLOOD CHOLESTEROL INCREASED
     Route: 048
  6. ATACAND [Concomitant]
     Indication: HYPERTENSION
     Route: 048
  7. XANAX [Concomitant]
     Indication: ANXIETY
     Route: 048
  8. ENTEX PSE [Concomitant]
     Indication: ILL-DEFINED DISORDER
     Route: 048
  9. HYZAAR [Concomitant]
     Indication: HYPERTENSION
     Route: 048
  10. ZOLOFT [Concomitant]
     Indication: DEPRESSION
     Route: 048

REACTIONS (7)
  - ABASIA [None]
  - APPLICATION SITE IRRITATION [None]
  - APPLICATION SITE REACTION [None]
  - CEREBROVASCULAR ACCIDENT [None]
  - DYSARTHRIA [None]
  - HEMIPARESIS [None]
  - PNEUMONIA [None]
